FAERS Safety Report 7866654-2 (Version None)
Quarter: 2011Q4

REPORT INFORMATION
  Report Type: 
  Country: None (occurrence: None)
  Receive Date: 20111028
  Receipt Date: 20110720
  Transmission Date: 20120403
  Serious: No
  Sender: FDA-Public Use
  Company Number: US-GLAXOSMITHKLINE-A0937477A

PATIENT
  Age: 78 Year
  Sex: Male

DRUGS (5)
  1. PAIN MEDICATION [Concomitant]
  2. ADVAIR DISKUS 100/50 [Suspect]
     Indication: DYSPNOEA
     Dosage: 1PUFF TWICE PER DAY
     Route: 055
     Dates: start: 20110523, end: 20110623
  3. PREDNISONE [Concomitant]
     Dosage: 12.5MG PER DAY
  4. BLOOD PRESSURE MEDICATION [Concomitant]
  5. METHOTREXATE [Concomitant]

REACTIONS (1)
  - DRUG INEFFECTIVE [None]
